FAERS Safety Report 20330002 (Version 1)
Quarter: 2022Q1

REPORT INFORMATION
  Report Type: Spontaneous
  Country: GB (occurrence: None)
  Receive Date: 20220113
  Receipt Date: 20220113
  Transmission Date: 20220423
  Serious: Yes (Hospitalization)
  Sender: FDA-Public Use
  Company Number: GB-Merck Healthcare KGaA-9292399

PATIENT
  Sex: Female

DRUGS (1)
  1. SAIZEN [Suspect]
     Active Substance: SOMATROPIN
     Indication: Product used for unknown indication
     Dosage: SAIZEN 6MG/1.03ML SOLUTION FOR INJECTION CARTRIDGES

REACTIONS (3)
  - Infection [Unknown]
  - Weight bearing difficulty [Unknown]
  - Product availability issue [Unknown]
